FAERS Safety Report 18979089 (Version 3)
Quarter: 2021Q2

REPORT INFORMATION
  Report Type: Report from Study
  Country: None (occurrence: GB)
  Receive Date: 20210308
  Receipt Date: 20210608
  Transmission Date: 20210717
  Serious: Yes (Hospitalization)
  Sender: FDA-Public Use
  Company Number: GB-ABBVIE-21K-167-3801522-00

PATIENT
  Age: 73 Year
  Sex: Male

DRUGS (3)
  1. OPICAPONE [Concomitant]
     Active Substance: OPICAPONE
     Indication: PRODUCT USED FOR UNKNOWN INDICATION
     Dosage: FREQUENCY AT NIGHT
  2. DUODOPA [Suspect]
     Active Substance: CARBIDOPA\LEVODOPA
     Indication: PARKINSON^S DISEASE
     Route: 050
     Dates: start: 2007, end: 202103
  3. DUODOPA [Suspect]
     Active Substance: CARBIDOPA\LEVODOPA
     Dosage: MORNING DOSE 5.0MLS; CONTINUOUS RATE 2.6MLS/HR; EXTRA DOSE 2.0MLS
     Route: 050
     Dates: start: 202104

REACTIONS (14)
  - Hallucination [Recovering/Resolving]
  - Dyskinesia [Recovering/Resolving]
  - Device dislocation [Recovered/Resolved]
  - Hip fracture [Unknown]
  - Headache [Unknown]
  - Fall [Recovering/Resolving]
  - Pain [Unknown]
  - Contusion [Unknown]
  - Device occlusion [Recovered/Resolved]
  - Dystonia [Recovering/Resolving]
  - Freezing phenomenon [Recovering/Resolving]
  - Device breakage [Recovering/Resolving]
  - Constipation [Recovering/Resolving]
  - Headache [Recovering/Resolving]

NARRATIVE: CASE EVENT DATE: 2007
